FAERS Safety Report 15183584 (Version 1)
Quarter: 2018Q3

REPORT INFORMATION
  Report Type: Spontaneous
  Country: US (occurrence: US)
  Receive Date: 20180625
  Receipt Date: 20180625
  Transmission Date: 20181010
  Serious: No
  Sender: FDA-Public Use
  Company Number: None

PATIENT
  Age: 34 Year
  Sex: Female

DRUGS (1)
  1. MAVYRET [Suspect]
     Active Substance: GLECAPREVIR\PIBRENTASVIR
     Dates: start: 20180625, end: 20180625

REACTIONS (6)
  - Lip dry [None]
  - Pyrexia [None]
  - Oral mucosal blistering [None]
  - Headache [None]
  - Migraine [None]
  - Vision blurred [None]

NARRATIVE: CASE EVENT DATE: 20180625
